FAERS Safety Report 14303380 (Version 2)
Quarter: 2018Q3

REPORT INFORMATION
  Report Type: Spontaneous
  Country: JP (occurrence: JP)
  Receive Date: 20171219
  Receipt Date: 20180803
  Transmission Date: 20181010
  Serious: Yes (Hospitalization, Other)
  Sender: FDA-Public Use
  Company Number: JP-OTSUKA-2015_013404

PATIENT
  Age: 4 Decade
  Sex: Female

DRUGS (1)
  1. ABILIFY [Suspect]
     Active Substance: ARIPIPRAZOLE
     Indication: PRODUCT USED FOR UNKNOWN INDICATION
     Dosage: 1.5MG/DAY
     Route: 048

REACTIONS (2)
  - Off label use [Unknown]
  - Pancreatitis [Recovered/Resolved]

NARRATIVE: CASE EVENT DATE: 201510
